FAERS Safety Report 16176548 (Version 14)
Quarter: 2022Q4

REPORT INFORMATION
  Report Type: Report from Study
  Country: CA (occurrence: CA)
  Receive Date: 20190409
  Receipt Date: 20221118
  Transmission Date: 20230113
  Serious: Yes (Hospitalization, Other)
  Sender: FDA-Public Use
  Company Number: PHHY2017CA174786

PATIENT
  Age: 70 Year
  Sex: Male

DRUGS (13)
  1. SANDOSTATIN LAR DEPOT [Suspect]
     Active Substance: OCTREOTIDE ACETATE
     Indication: Carcinoid syndrome
     Dosage: 20 MG, QMO (EVERY 4 WEEKS)
     Route: 030
     Dates: start: 20071120
  2. SANDOSTATIN LAR DEPOT [Suspect]
     Active Substance: OCTREOTIDE ACETATE
     Dosage: 20 MG, QMO
     Route: 030
     Dates: start: 2018
  3. SANDOSTATIN LAR DEPOT [Suspect]
     Active Substance: OCTREOTIDE ACETATE
  4. LOSEC [Concomitant]
     Active Substance: OMEPRAZOLE
     Indication: Product used for unknown indication
     Dosage: UNK UNK, QD
     Route: 065
  5. METOPROLOL [Concomitant]
     Active Substance: METOPROLOL
     Indication: Product used for unknown indication
     Dosage: 50 MG, BID
     Route: 065
  6. LASIX [Concomitant]
     Active Substance: FUROSEMIDE
     Indication: Product used for unknown indication
     Dosage: 40 MG, QD
     Route: 065
  7. POTASSIUM [Concomitant]
     Active Substance: POTASSIUM
     Indication: Product used for unknown indication
     Dosage: UNK UNK, QD
     Route: 065
  8. ATENOLOL [Concomitant]
     Active Substance: ATENOLOL
     Indication: Product used for unknown indication
     Dosage: 1 DOSAGE FORM, QD
     Route: 065
     Dates: start: 2008
  9. ZOCOR [Concomitant]
     Active Substance: SIMVASTATIN
     Indication: Product used for unknown indication
     Dosage: 1 DOSAGE FORM, QD
     Route: 065
     Dates: start: 2009
  10. ASPIRIN [Concomitant]
     Active Substance: ASPIRIN
     Indication: Product used for unknown indication
     Dosage: UNK UNK, QD
     Route: 065
     Dates: start: 2008
  11. METFORMIN [Concomitant]
     Active Substance: METFORMIN HYDROCHLORIDE
     Indication: Product used for unknown indication
     Dosage: UNK UNK, BID
     Route: 065
     Dates: start: 2008
  12. ASPIRIN [Concomitant]
     Active Substance: ASPIRIN
     Indication: Product used for unknown indication
     Dosage: UNK
     Route: 065
     Dates: start: 2008
  13. PANTOPRAZOLE [Concomitant]
     Active Substance: PANTOPRAZOLE
     Indication: Product used for unknown indication
     Dosage: UNK
     Route: 065

REACTIONS (49)
  - Haemoglobin decreased [Unknown]
  - Gastric ulcer [Unknown]
  - Gastrointestinal haemorrhage [Unknown]
  - Melaena [Unknown]
  - Presyncope [Unknown]
  - Anastomotic ulcer [Unknown]
  - Vomiting [Unknown]
  - Asthenia [Unknown]
  - Prostate cancer [Unknown]
  - Pollakiuria [Unknown]
  - Urine flow decreased [Unknown]
  - Second primary malignancy [Unknown]
  - Angina pectoris [Unknown]
  - Metastases to liver [Unknown]
  - Large intestine polyp [Unknown]
  - Neuroendocrine tumour [Unknown]
  - Chronic gastritis [Unknown]
  - Cough [Unknown]
  - Cholelithiasis [Unknown]
  - Faeces soft [Unknown]
  - Heart rate decreased [Unknown]
  - Arthralgia [Recovered/Resolved]
  - Chills [Recovered/Resolved]
  - Vomiting [Recovered/Resolved]
  - Glycosylated haemoglobin increased [Unknown]
  - Blood pressure diastolic decreased [Unknown]
  - Arthralgia [Unknown]
  - Oedema peripheral [Unknown]
  - Fall [Unknown]
  - Blood pressure decreased [Unknown]
  - Gait disturbance [Unknown]
  - Benign prostatic hyperplasia [Unknown]
  - Joint injury [Recovered/Resolved]
  - Haemoglobin increased [Unknown]
  - Blood pressure systolic increased [Unknown]
  - Gastroenteritis viral [Recovered/Resolved]
  - SARS-CoV-2 test positive [Unknown]
  - Phlebitis [Recovered/Resolved]
  - Blood glucose increased [Unknown]
  - Headache [Unknown]
  - Fatigue [Not Recovered/Not Resolved]
  - Dyspnoea exertional [Unknown]
  - Injection site swelling [Recovered/Resolved]
  - Injection site mass [Recovered/Resolved]
  - Injection site pain [Recovered/Resolved]
  - Injection site pain [Unknown]
  - Injection site erythema [Unknown]
  - Injection site warmth [Unknown]
  - Injection site swelling [Unknown]

NARRATIVE: CASE EVENT DATE: 20170101
